FAERS Safety Report 23480613 (Version 1)
Quarter: 2024Q1

REPORT INFORMATION
  Report Type: Spontaneous
  Country: US (occurrence: US)
  Receive Date: 20240205
  Receipt Date: 20240205
  Transmission Date: 20240410
  Serious: Yes (Other)
  Sender: FDA-Public Use
  Company Number: US-LEADINGPHARMA-US-2024LEALIT00009

PATIENT
  Age: 74 Year
  Sex: Female

DRUGS (3)
  1. LIDOCAINE [Suspect]
     Active Substance: LIDOCAINE
     Indication: Lumbar radiculopathy
     Route: 065
  2. METHYLPREDNISOLONE [Suspect]
     Active Substance: METHYLPREDNISOLONE
     Indication: Lumbar radiculopathy
     Route: 065
  3. IOHEXOL [Concomitant]
     Active Substance: IOHEXOL
     Indication: Product use in unapproved indication
     Route: 065

REACTIONS (3)
  - Meningitis aseptic [Unknown]
  - Medication error [Unknown]
  - Product use in unapproved indication [Unknown]
